FAERS Safety Report 5874532-3 (Version None)
Quarter: 2008Q3

REPORT INFORMATION
  Report Type: 
  Country: None (occurrence: None)
  Receive Date: 20080909
  Receipt Date: 20080901
  Transmission Date: 20090109
  Serious: Yes (Hospitalization)
  Sender: FDA-Public Use
  Company Number: PHHY2008DE10818

PATIENT
  Sex: Male

DRUGS (8)
  1. EXFORGE [Suspect]
     Dosage: 160 MG VALSARTAN/10 MG AMLODIPINE/DAY
     Dates: end: 20080501
  2. EXFORGE [Suspect]
     Dosage: 80 MG VAL/5 MG AMLODIPIE/DAY
     Dates: start: 20080501
  3. DIOVAN HCT [Suspect]
     Dosage: 80 MG VALSARTAN/12.5 MG HCT
  4. HCT ^CT-ARZNEIMITTEL^ [Suspect]
     Dosage: 25 MG, UNK
  5. RASILEZ [Concomitant]
     Dosage: 1 DF, QD
  6. ASS ^CT-ARZNEIMITTEL^ [Concomitant]
     Dosage: 1 DF, QD
  7. MOXONIDINE [Concomitant]
     Dosage: 1 DF, QD
  8. AMLODIPINE [Concomitant]
     Dosage: 1 DF, QD

REACTIONS (6)
  - BLOOD PRESSURE DECREASED [None]
  - COUGH [None]
  - DIZZINESS [None]
  - HYPERHIDROSIS [None]
  - HYPERTENSIVE CRISIS [None]
  - PARAESTHESIA [None]
